FAERS Safety Report 12639657 (Version 3)
Quarter: 2016Q4

REPORT INFORMATION
  Report Type: Spontaneous
  Country: US (occurrence: US)
  Receive Date: 20160810
  Receipt Date: 20161006
  Transmission Date: 20170207
  Serious: Yes (Life-Threatening, Hospitalization, Other)
  Sender: FDA-Public Use
  Company Number: US-AMGEN-USASP2016101542

PATIENT
  Age: 47 Year
  Sex: Female

DRUGS (2)
  1. ENBREL [Suspect]
     Active Substance: ETANERCEPT
     Indication: PSORIASIS
  2. ENBREL [Suspect]
     Active Substance: ETANERCEPT
     Indication: RHEUMATOID ARTHRITIS
     Dosage: 50 MG, QWK
     Route: 065
     Dates: start: 200703, end: 2007

REACTIONS (16)
  - Bone disorder [Unknown]
  - Sensory loss [Unknown]
  - Dizziness [Unknown]
  - Musculoskeletal disorder [Unknown]
  - Grip strength decreased [Unknown]
  - Back pain [Unknown]
  - Feeling abnormal [Unknown]
  - Quality of life decreased [Unknown]
  - Finger deformity [Not Recovered/Not Resolved]
  - Malaise [Unknown]
  - Neuropathy peripheral [Not Recovered/Not Resolved]
  - Thermal burn [Unknown]
  - Guillain-Barre syndrome [Unknown]
  - Gait disturbance [Unknown]
  - Mobility decreased [Unknown]
  - Activities of daily living impaired [Unknown]

NARRATIVE: CASE EVENT DATE: 2007
